FAERS Safety Report 16873506 (Version 1)
Quarter: 2019Q4

REPORT INFORMATION
  Report Type: Spontaneous
  Country: US (occurrence: US)
  Receive Date: 20191001
  Receipt Date: 20191001
  Transmission Date: 20200122
  Serious: No
  Sender: FDA-Public Use
  Company Number: US-PFIZER INC-2019420357

PATIENT
  Sex: Female

DRUGS (2)
  1. AROMASIN [Suspect]
     Active Substance: EXEMESTANE
     Dosage: UNK
  2. IBRANCE [Suspect]
     Active Substance: PALBOCICLIB

REACTIONS (1)
  - Alopecia [Unknown]
